FAERS Safety Report 20223483 (Version 1)
Quarter: 2021Q4

REPORT INFORMATION
  Report Type: Spontaneous
  Country: CN (occurrence: None)
  Receive Date: 20211223
  Receipt Date: 20211223
  Transmission Date: 20220303
  Serious: Yes (Hospitalization)
  Sender: FDA-Public Use
  Company Number: 2021A882815

PATIENT
  Sex: Female

DRUGS (1)
  1. FASLODEX [Suspect]
     Active Substance: FULVESTRANT
     Route: 030

REACTIONS (7)
  - Hypersensitivity [Unknown]
  - Agitation [Unknown]
  - Chest discomfort [Unknown]
  - Palpitations [Unknown]
  - Dyspnoea [Unknown]
  - Speech disorder [Unknown]
  - Drug eruption [Unknown]
